FAERS Safety Report 10239688 (Version 6)
Quarter: 2015Q2

REPORT INFORMATION
  Report Type: Spontaneous
  Country: US (occurrence: US)
  Receive Date: 20140616
  Receipt Date: 20150406
  Transmission Date: 20150821
  Serious: Yes (Disabling, Other)
  Sender: FDA-Public Use
  Company Number: US-MERCK-1406USA007299

PATIENT
  Sex: Male
  Weight: 70.3 kg

DRUGS (3)
  1. ACETAMINOPHEN. [Concomitant]
     Active Substance: ACETAMINOPHEN
     Indication: PAIN
     Dosage: UNK
     Dates: start: 200503, end: 201005
  2. PROPECIA [Suspect]
     Active Substance: FINASTERIDE
     Indication: ALOPECIA
     Dosage: 1 MG, QD
     Route: 048
     Dates: start: 20070109, end: 200702
  3. CHLORHEXIDINE GLUCONATE. [Concomitant]
     Active Substance: CHLORHEXIDINE GLUCONATE
     Indication: GINGIVITIS
     Dosage: UNK
     Dates: start: 200503, end: 201005

REACTIONS (27)
  - Prostatomegaly [Unknown]
  - Blood testosterone abnormal [Unknown]
  - Blood follicle stimulating hormone increased [Unknown]
  - Ejaculation disorder [Not Recovered/Not Resolved]
  - Depression [Not Recovered/Not Resolved]
  - Asthenia [Unknown]
  - Blood testosterone free decreased [Unknown]
  - Stress [Unknown]
  - Testicular failure primary [Unknown]
  - Hypoaesthesia [Unknown]
  - Cerumen impaction [Unknown]
  - Adverse event [Recovering/Resolving]
  - Feeling abnormal [Not Recovered/Not Resolved]
  - Reproductive tract disorder [Not Recovered/Not Resolved]
  - Prostatitis [Unknown]
  - Cognitive disorder [Not Recovered/Not Resolved]
  - Anxiety [Not Recovered/Not Resolved]
  - Sex hormone binding globulin increased [Unknown]
  - Libido decreased [Not Recovered/Not Resolved]
  - Testicular disorder [Unknown]
  - Hypogonadism [Unknown]
  - Conductive deafness [Unknown]
  - Erectile dysfunction [Not Recovered/Not Resolved]
  - Sexual dysfunction [Not Recovered/Not Resolved]
  - Ejaculation failure [Not Recovered/Not Resolved]
  - Bedridden [Unknown]
  - Testicular pain [Unknown]

NARRATIVE: CASE EVENT DATE: 2007
